FAERS Safety Report 17024268 (Version 1)
Quarter: 2019Q4

REPORT INFORMATION
  Report Type: Other
  Country: GB (occurrence: GB)
  Receive Date: 20191113
  Receipt Date: 20191113
  Transmission Date: 20200122
  Serious: Yes (Other)
  Sender: FDA-Public Use
  Company Number: GB-MACLEODS PHARMACEUTICALS US LTD-MAC2019023661

PATIENT

DRUGS (4)
  1. PANTOPRAZOLE GASTRO RESISTANT TABLET [Suspect]
     Active Substance: PANTOPRAZOLE SODIUM
     Indication: DYSPHAGIA
     Dosage: 80 MILLIGRAM, QD
     Route: 048
     Dates: start: 20180627
  2. CYCLIZINE [Concomitant]
     Active Substance: CYCLIZINE
     Indication: PRODUCT USED FOR UNKNOWN INDICATION
     Dosage: 150 MILLIGRAM, QD
     Route: 048
     Dates: start: 20180627
  3. ACIDEX [Concomitant]
     Active Substance: CALCIUM CARBONATE\SODIUM ALGINATE\SODIUM BICARBONATE
     Indication: PRODUCT USED FOR UNKNOWN INDICATION
     Dosage: 5 MILLILITER, AS NECESSARY
     Route: 065
     Dates: start: 20180703
  4. OMEPRAZOLE CAPSULES 20 MG [Suspect]
     Active Substance: OMEPRAZOLE
     Indication: DYSPHAGIA
     Dosage: 20 MILLIGRAM, QD
     Route: 048
     Dates: start: 20171108, end: 20171208

REACTIONS (2)
  - Deafness [Unknown]
  - Tinnitus [Unknown]
